FAERS Safety Report 24789751 (Version 1)
Quarter: 2024Q4

REPORT INFORMATION
  Report Type: Spontaneous
  Country: US (occurrence: None)
  Receive Date: 20241230
  Receipt Date: 20241230
  Transmission Date: 20250115
  Serious: Yes (Other)
  Sender: Public
  Company Number: None

PATIENT
  Age: 65 Year
  Sex: Female

DRUGS (2)
  1. XDEMVY [Suspect]
     Active Substance: LOTILANER
     Indication: Dermatitis
     Dosage: FREQUENCY : TWICE A DAY;?
     Route: 047
     Dates: start: 20241127
  2. XDEMVY [Concomitant]
     Active Substance: LOTILANER
     Dates: start: 20241127

REACTIONS (1)
  - Migraine [None]

NARRATIVE: CASE EVENT DATE: 20241212
